FAERS Safety Report 7089508-0 (Version None)
Quarter: 2010Q4

REPORT INFORMATION
  Report Type: 
  Country: None (occurrence: None)
  Receive Date: 20101108
  Receipt Date: 20101028
  Transmission Date: 20110411
  Serious: Yes (Other)
  Sender: FDA-Public Use
  Company Number: CA-JNJFOC-20100703353

PATIENT
  Sex: Female
  Weight: 65.6 kg

DRUGS (6)
  1. REMICADE [Suspect]
     Indication: RHEUMATOID ARTHRITIS
     Route: 042
  2. REMICADE [Suspect]
     Dosage: 24 DOSES ON UNKNOWN DATES
     Route: 042
  3. REMICADE [Suspect]
     Route: 042
  4. REMICADE [Suspect]
     Route: 042
  5. ARAVA [Concomitant]
  6. IBUPROFEN [Concomitant]

REACTIONS (2)
  - LIMB SALVAGE THERAPY [None]
  - STAPHYLOCOCCAL INFECTION [None]
